FAERS Safety Report 5287323-1 (Version None)
Quarter: 2007Q1

REPORT INFORMATION
  Report Type: 
  Country: None (occurrence: None)
  Receive Date: 20070116
  Receipt Date: 20061211
  Transmission Date: 20070707
  Serious: No
  Sender: FDA-Public Use
  Company Number: 2006SP004354

PATIENT
  Age: 81 Year
  Sex: Female
  Weight: 52.1637 kg

DRUGS (5)
  1. LUNESTA [Suspect]
     Indication: INSOMNIA
     Dosage: 2 MG; HS;ORAL
     Route: 048
     Dates: start: 20061201
  2. FLORA-Q [Suspect]
     Dates: start: 20061206
  3. PANTOPRAZOLE [Concomitant]
  4. VIATIMINS [Concomitant]
  5. AMBIEN [Concomitant]

REACTIONS (2)
  - DIZZINESS [None]
  - EYE PRURITUS [None]
